FAERS Safety Report 8903780 (Version 1)
Quarter: 2012Q4

REPORT INFORMATION
  Report Type: 
  Country: JP (occurrence: JP)
  Receive Date: 20121112
  Receipt Date: 20121112
  Transmission Date: 20130627
  Serious: Yes (Other)
  Sender: FDA-Public Use
  Company Number: JP-009507513-2006SP000437

PATIENT
  Age: 57 Year
  Sex: Male

DRUGS (4)
  1. PEGINTRON [Suspect]
     Indication: CHRONIC HEPATITIS C
     Dosage: 120 Microgram, qw
     Route: 058
     Dates: start: 20050513, end: 20060512
  2. REBETOL [Suspect]
     Indication: CHRONIC HEPATITIS C
     Dosage: 1000 mg, QD
     Route: 048
     Dates: start: 20050513
  3. REBETOL [Suspect]
     Dosage: 800 mg, QD
     Route: 048
     Dates: start: 2005
  4. GLYCORAN [Concomitant]
     Indication: DIABETES MELLITUS
     Dosage: 3 DF, qd
     Route: 048

REACTIONS (2)
  - Haemolytic anaemia [Unknown]
  - Glycosylated haemoglobin decreased [Unknown]
